FAERS Safety Report 14188347 (Version 3)
Quarter: 2018Q2

REPORT INFORMATION
  Report Type: Report from Study
  Country: IT (occurrence: IT)
  Receive Date: 20171114
  Receipt Date: 20180611
  Transmission Date: 20180711
  Serious: Yes (Hospitalization)
  Sender: FDA-Public Use
  Company Number: IT-INTERCEPT-CTOCA2017001385

PATIENT

DRUGS (6)
  1. ESKIM [Concomitant]
     Active Substance: OMEGA-3 FATTY ACIDS
     Indication: DYSLIPIDAEMIA
     Dosage: 1000 MG, BID
     Route: 048
     Dates: start: 2016
  2. OBETICHOLIC ACID [Suspect]
     Active Substance: OBETICHOLIC ACID
     Indication: NON-ALCOHOLIC STEATOHEPATITIS
     Dosage: 25 MG, QD
     Route: 048
     Dates: start: 20170906
  3. DIBASE [Concomitant]
     Active Substance: CHOLECALCIFEROL
     Indication: VITAMIN D DEFICIENCY
     Dosage: 25000 IU, QW
     Route: 048
     Dates: start: 2015
  4. SLOWMET [Concomitant]
     Active Substance: METFORMIN HYDROCHLORIDE
     Indication: TYPE 2 DIABETES MELLITUS
     Dosage: 750 MG, QD
     Route: 048
     Dates: start: 2015
  5. SURSUM [Concomitant]
     Indication: NON-ALCOHOLIC STEATOHEPATITIS
     Dosage: 400 MG, QD
     Route: 048
     Dates: start: 2016
  6. ATORVASTATIN [Concomitant]
     Active Substance: ATORVASTATIN
     Indication: DYSLIPIDAEMIA
     Dosage: 10 MG, QD
     Route: 048
     Dates: start: 201705

REACTIONS (1)
  - Abdominal pain [Recovered/Resolved]

NARRATIVE: CASE EVENT DATE: 20171106
